FAERS Safety Report 7471633-3 (Version None)
Quarter: 2011Q2

REPORT INFORMATION
  Report Type: 
  Country: None (occurrence: None)
  Receive Date: 20110502
  Receipt Date: 20110420
  Transmission Date: 20111010
  Serious: Yes (Hospitalization)
  Sender: FDA-Public Use
  Company Number: 2011001846

PATIENT
  Age: 80 Year
  Sex: Male

DRUGS (12)
  1. LASIX [Concomitant]
  2. LAC-B (LACTOBACILLUS BIFIDUS, LYOPHILIZED) [Concomitant]
  3. UNIPHYL [Concomitant]
  4. WARFARIN (WARFARIN) [Concomitant]
  5. DIOVAN [Concomitant]
  6. PLETAL [Concomitant]
  7. RESTAMIN (DIPHENHYDRAMINE) [Concomitant]
  8. ERLOTINIB HYDROCHLORIDE [Suspect]
     Indication: NON-SMALL CELL LUNG CANCER
     Dosage: 150 MG, QD, ORAL
     Route: 048
     Dates: start: 20100616, end: 20110417
  9. ADOAIR [Concomitant]
  10. MUCOSTA (REBAMIPIDE) [Concomitant]
  11. CONIEL (BENIDIPINE HYDROCHLORIDE) [Concomitant]
  12. MUCOSOLVAN L (AMBROXOL) [Concomitant]

REACTIONS (8)
  - HYPOXIA [None]
  - STOMATITIS [None]
  - ASTHMA [None]
  - RESPIRATORY TRACT INFECTION [None]
  - MALAISE [None]
  - PYREXIA [None]
  - BRONCHIAL WALL THICKENING [None]
  - UNEVALUABLE EVENT [None]
